FAERS Safety Report 9349899 (Version 1)
Quarter: 2013Q2

REPORT INFORMATION
  Report Type: Spontaneous
  Country: FR (occurrence: FR)
  Receive Date: 20130614
  Receipt Date: 20130614
  Transmission Date: 20140414
  Serious: Yes (Hospitalization, Other)
  Sender: FDA-Public Use
  Company Number: PHHY2013FR055639

PATIENT
  Age: 35 Year
  Sex: 0
  Weight: 120 kg

DRUGS (12)
  1. CLOZAPINE [Suspect]
     Indication: SCHIZOPHRENIA
     Dosage: 600 MG, QD
     Dates: start: 2004
  2. CLOZAPINE [Suspect]
     Dosage: 50 MG, QD
  3. CLOZAPINE [Suspect]
     Dosage: 100 MG, QD
  4. CLOZAPINE [Suspect]
     Dosage: 50 MG, QD
  5. CLOZAPINE [Suspect]
     Dosage: 300 MG, PER DAY
     Dates: start: 2008
  6. CLOZAPINE [Suspect]
     Dosage: UNK UKN, UNK
     Dates: start: 201005
  7. CLOZAPINE [Suspect]
     Dosage: UNK
     Dates: start: 2010
  8. CLOZAPINE [Suspect]
     Dosage: 25 MG, (EVERY 3 DAYS)
     Dates: start: 20110630
  9. RISPERIDONE [Suspect]
     Dosage: 18 MG, QD
  10. RISPERIDONE [Suspect]
     Dosage: 12 MG, QD
     Dates: start: 20110310, end: 20110628
  11. HALOPERIDOL [Suspect]
     Dosage: 45 MG, QD
  12. HALOPERIDOL [Suspect]
     Dosage: 40 MG, QD
     Dates: end: 20110628

REACTIONS (6)
  - Neutropenia [Recovered/Resolved]
  - Body mass index increased [Recovering/Resolving]
  - Delusion [Unknown]
  - Hallucination [Unknown]
  - Blood pressure increased [Recovered/Resolved]
  - Electrocardiogram QT prolonged [Recovered/Resolved]
